FAERS Safety Report 9887391 (Version 3)
Quarter: 2016Q2

REPORT INFORMATION
  Report Type: Spontaneous
  Country: JP (occurrence: JP)
  Receive Date: 20140211
  Receipt Date: 20160521
  Transmission Date: 20160815
  Serious: Yes (Other)
  Sender: FDA-Public Use
  Company Number: JP-AMGEN-JPNSP2014007383

PATIENT
  Sex: Female

DRUGS (4)
  1. ENBREL [Suspect]
     Active Substance: ETANERCEPT
     Indication: RHEUMATOID ARTHRITIS
     Dosage: 25 MG WEEKLY
     Route: 058
     Dates: start: 20100416, end: 201011
  2. EDIROL [Suspect]
     Active Substance: ELDECALCITOL
     Indication: OSTEOPOROSIS
     Dosage: UNK
     Route: 065
  3. ADALAT [Suspect]
     Active Substance: NIFEDIPINE
     Indication: BLOOD PRESSURE MEASUREMENT
     Dosage: UNK
     Route: 065
  4. ENBREL [Suspect]
     Active Substance: ETANERCEPT
     Dosage: 50 MG WEEKLY
     Route: 058
     Dates: start: 201011

REACTIONS (11)
  - Peripheral swelling [Unknown]
  - Red blood cell sedimentation rate increased [Unknown]
  - Tubulointerstitial nephritis [Unknown]
  - Subarachnoid haemorrhage [Unknown]
  - Blood creatinine increased [Recovered/Resolved]
  - Blood calcium increased [Recovered/Resolved]
  - Blood urea increased [Recovered/Resolved]
  - Flatulence [Unknown]
  - Abdominal distension [Unknown]
  - Abdominal lymphadenopathy [Not Recovered/Not Resolved]
  - Dental caries [Unknown]

NARRATIVE: CASE EVENT DATE: 2012
